FAERS Safety Report 6202961-7 (Version None)
Quarter: 2009Q2

REPORT INFORMATION
  Report Type: 
  Country: None (occurrence: None)
  Receive Date: 20090518
  Receipt Date: 20090504
  Transmission Date: 20091009
  Serious: No
  Sender: FDA-Public Use
  Company Number: 2009-196043-NL

PATIENT
  Age: 75 Year
  Sex: Male

DRUGS (1)
  1. BCG LIVE [Suspect]
     Indication: BLADDER TRANSITIONAL CELL CARCINOMA
     Dosage: INTRAVESICAL
     Route: 043
     Dates: start: 20060101, end: 20061201

REACTIONS (2)
  - PENILE INFECTION [None]
  - TUBERCULOSIS [None]
